FAERS Safety Report 25016727 (Version 1)
Quarter: 2025Q1

REPORT INFORMATION
  Report Type: Spontaneous
  Country: US (occurrence: US)
  Receive Date: 20250227
  Receipt Date: 20250227
  Transmission Date: 20250408
  Serious: No
  Sender: UCB
  Company Number: US-UCBSA-2023060946

PATIENT
  Age: 5 Decade
  Sex: Female

DRUGS (9)
  1. KEPPRA [Suspect]
     Active Substance: LEVETIRACETAM
     Indication: Seizure
  2. KEPPRA [Suspect]
     Active Substance: LEVETIRACETAM
     Indication: Posterior reversible encephalopathy syndrome
  3. KEPPRA [Suspect]
     Active Substance: LEVETIRACETAM
     Indication: Off label use
  4. ATIVAN [Concomitant]
     Active Substance: LORAZEPAM
     Indication: Seizure
  5. ATIVAN [Concomitant]
     Active Substance: LORAZEPAM
     Indication: Posterior reversible encephalopathy syndrome
  6. HYDRALAZINE [Concomitant]
     Active Substance: HYDRALAZINE HYDROCHLORIDE
     Indication: Hypertensive crisis
  7. LABETALOL [Concomitant]
     Active Substance: LABETALOL
     Indication: Hypertensive crisis
  8. ASPIRIN [Concomitant]
     Active Substance: ASPIRIN
     Indication: Posterior reversible encephalopathy syndrome
  9. CAPECITABINE [Concomitant]
     Active Substance: CAPECITABINE
     Indication: Adenocarcinoma gastric

REACTIONS (1)
  - No adverse event [Unknown]
